FAERS Safety Report 6030254-X (Version None)
Quarter: 2009Q1

REPORT INFORMATION
  Report Type: 
  Country: None (occurrence: None)
  Receive Date: 20090101
  Receipt Date: 20090101
  Transmission Date: 20090719
  Serious: Yes (Life-Threatening, Other)
  Sender: FDA-Public Use
  Company Number: None

PATIENT
  Sex: Male
  Weight: 92.9874 kg

DRUGS (1)
  1. MUCINEX D [Suspect]
     Dates: start: 20081101, end: 20081231

REACTIONS (4)
  - DRY THROAT [None]
  - HALLUCINATION [None]
  - NAUSEA [None]
  - PRODUCT QUALITY ISSUE [None]
